FAERS Safety Report 5047136-2 (Version None)
Quarter: 2006Q3

REPORT INFORMATION
  Report Type: 
  Country: None (occurrence: None)
  Receive Date: 20060703
  Receipt Date: 20060619
  Transmission Date: 20061208
  Serious: Yes (Death, Other)
  Sender: FDA-Public Use
  Company Number: 2006072140

PATIENT
  Age: 73 Year
  Sex: Male

DRUGS (4)
  1. GEODON [Suspect]
     Dosage: 20 MG (STAT), INTRAMUSCULAR
     Route: 030
     Dates: start: 20060512, end: 20060515
  2. ETOMINE (CLOTIAPINE) [Concomitant]
  3. ATIVAN [Concomitant]
  4. HALOPERIDOL [Concomitant]

REACTIONS (1)
  - EXTRAPYRAMIDAL DISORDER [None]
